FAERS Safety Report 8070972-5 (Version None)
Quarter: 2012Q1

REPORT INFORMATION
  Report Type: 
  Country: None (occurrence: None)
  Receive Date: 20120125
  Receipt Date: 20120119
  Transmission Date: 20120608
  Serious: Yes (Hospitalization, Disabling)
  Sender: FDA-Public Use
  Company Number: US-MERCK-1108USA02804

PATIENT
  Age: 56 Year
  Sex: Female

DRUGS (8)
  1. CALCIUM (UNSPECIFIED) [Concomitant]
     Route: 065
     Dates: start: 19900101
  2. LEXAPRO [Concomitant]
     Indication: DEPRESSION
     Route: 065
     Dates: start: 20040701, end: 20100601
  3. FOSAMAX [Suspect]
     Indication: OSTEOPENIA
     Route: 048
     Dates: start: 19990701, end: 20010301
  4. FOSAMAX [Suspect]
     Route: 048
     Dates: start: 20010401, end: 20050101
  5. VITAMIN D (UNSPECIFIED) [Concomitant]
     Route: 065
     Dates: start: 19900101
  6. FOSAMAX PLUS D [Suspect]
     Indication: OSTEOPENIA
     Route: 048
     Dates: start: 20080201, end: 20100301
  7. VITAMINS (UNSPECIFIED) [Concomitant]
     Route: 065
     Dates: start: 19900101
  8. SYNTHROID [Concomitant]
     Indication: HYPOTHYROIDISM
     Route: 065
     Dates: start: 20010601, end: 20080601

REACTIONS (12)
  - VITAMIN D DEFICIENCY [None]
  - BACK PAIN [None]
  - LOW TURNOVER OSTEOPATHY [None]
  - OSTEOARTHRITIS [None]
  - ADVERSE EVENT [None]
  - FOOT FRACTURE [None]
  - OSTEOPOROSIS [None]
  - PAIN IN EXTREMITY [None]
  - CALCIUM DEFICIENCY [None]
  - FALL [None]
  - FEMUR FRACTURE [None]
  - RENAL IMPAIRMENT [None]
